FAERS Safety Report 6735234-4 (Version None)
Quarter: 2010Q2

REPORT INFORMATION
  Report Type: 
  Country: None (occurrence: None)
  Receive Date: 20100519
  Receipt Date: 20100504
  Transmission Date: 20101027
  Serious: Yes (Death)
  Sender: FDA-Public Use
  Company Number: 2010US-33570

PATIENT
  Age: 47 Year
  Sex: Female

DRUGS (10)
  1. FLUOXETINE [Suspect]
  2. SERTRALINE HCL [Suspect]
  3. TRIMETHOPRIM [Suspect]
     Indication: DRUG USE FOR UNKNOWN INDICATION
  4. TRAZODONE HCL [Suspect]
     Indication: DRUG USE FOR UNKNOWN INDICATION
  5. METHAMPHETAMINE (METHAMPHETAMINE), UNKNOWN [Suspect]
     Indication: DRUG USE FOR UNKNOWN INDICATION
  6. BUPROPION (BUPROPION), UNKNOWN [Suspect]
     Indication: DRUG USE FOR UNKNOWN INDICATION
  7. AMPHETAMINE (AMPHETAMINE), UNKNOWN [Suspect]
     Indication: DRUG USE FOR UNKNOWN INDICATION
  8. CHLORPHENAMINE (CHLORPHENAMINE), UNKNOWN [Suspect]
     Indication: DRUG USE FOR UNKNOWN INDICATION
  9. OXYMORPHONE [Suspect]
     Indication: DRUG USE FOR UNKNOWN INDICATION
  10. NOR-FLUOXETINE (NOR-FLUOXETINE), UNKNOWN [Suspect]

REACTIONS (5)
  - ACCIDENTAL DEATH [None]
  - ALCOHOL POISONING [None]
  - DRUG ABUSE [None]
  - DRUG TOXICITY [None]
  - PULMONARY CONGESTION [None]
